FAERS Safety Report 24229900 (Version 1)
Quarter: 2024Q3

REPORT INFORMATION
  Report Type: Spontaneous
  Country: US (occurrence: None)
  Receive Date: 20240820
  Receipt Date: 20240820
  Transmission Date: 20241017
  Serious: Yes (Hospitalization)
  Sender: Public
  Company Number: None

PATIENT
  Sex: Male
  Weight: 91.2 kg

DRUGS (3)
  1. CISPLATIN [Suspect]
     Active Substance: CISPLATIN
  2. IFOSFAMIDE [Suspect]
     Active Substance: IFOSFAMIDE
  3. TAXOL [Suspect]
     Active Substance: PACLITAXEL

REACTIONS (2)
  - Urinary retention [None]
  - Sepsis [None]

NARRATIVE: CASE EVENT DATE: 20240805
